FAERS Safety Report 20507704 (Version 6)
Quarter: 2023Q2

REPORT INFORMATION
  Report Type: Other
  Country: DE (occurrence: None)
  Receive Date: 20220223
  Receipt Date: 20230620
  Transmission Date: 20230722
  Serious: No
  Sender: FDA-Public Use
  Company Number: DE-ROCHE-2284836

PATIENT
  Age: 24 Year
  Sex: Female
  Weight: 75 kg

DRUGS (8)
  1. OCREVUS [Suspect]
     Active Substance: OCRELIZUMAB
     Indication: Relapsing-remitting multiple sclerosis
     Route: 042
     Dates: start: 20190227
  2. OCREVUS [Suspect]
     Active Substance: OCRELIZUMAB
     Route: 042
     Dates: start: 20190313
  3. OCREVUS [Suspect]
     Active Substance: OCRELIZUMAB
     Route: 042
     Dates: start: 20191016
  4. OCREVUS [Suspect]
     Active Substance: OCRELIZUMAB
     Route: 042
     Dates: start: 20200702
  5. OCREVUS [Suspect]
     Active Substance: OCRELIZUMAB
     Route: 042
     Dates: start: 20210630
  6. DESOGESTREL [Suspect]
     Active Substance: DESOGESTREL
     Indication: Contraception
     Dosage: DESOGESTREL 75
     Route: 048
  7. NOVALGIN (METAMIZOLE SODIUM) [Concomitant]
     Active Substance: METAMIZOLE SODIUM
  8. CANNABIS SATIVA SUBSP. INDICA TOP [Concomitant]
     Active Substance: CANNABIS SATIVA SUBSP. INDICA TOP

REACTIONS (28)
  - Rash erythematous [Recovered/Resolved]
  - Dyspnoea [Recovered/Resolved]
  - Pharyngeal swelling [Recovered/Resolved]
  - Body temperature increased [Recovered/Resolved]
  - Fatigue [Recovered/Resolved]
  - Paraesthesia [Recovering/Resolving]
  - Vomiting [Not Recovered/Not Resolved]
  - Increased upper airway secretion [Recovered/Resolved]
  - Weight decreased [Not Recovered/Not Resolved]
  - Pain in extremity [Recovered/Resolved]
  - Chills [Recovered/Resolved]
  - Hyperthyroidism [Not Recovered/Not Resolved]
  - Thyroid mass [Not Recovered/Not Resolved]
  - Cystitis noninfective [Recovered/Resolved]
  - Abdominal discomfort [Recovered/Resolved]
  - Abdominal pain [Recovered/Resolved]
  - Ovarian cyst [Recovered/Resolved]
  - Cystitis [Recovered/Resolved]
  - Chlamydial infection [Recovered/Resolved]
  - Parosmia [Recovered/Resolved]
  - Throat irritation [Recovered/Resolved]
  - B-lymphocyte count decreased [Recovered/Resolved]
  - Rash [Recovered/Resolved]
  - Headache [Recovered/Resolved]
  - Diarrhoea [Recovered/Resolved]
  - Pulpitis dental [Recovered/Resolved]
  - Tooth extraction [Recovered/Resolved]
  - Suspected COVID-19 [Recovered/Resolved]

NARRATIVE: CASE EVENT DATE: 20190227
